FAERS Safety Report 5263495-X (Version None)
Quarter: 2007Q1

REPORT INFORMATION
  Report Type: 
  Country: None (occurrence: None)
  Receive Date: 20061213
  Receipt Date: 20041008
  Transmission Date: 20070707
  Serious: Yes (Other)
  Sender: FDA-Public Use
  Company Number: 2004UW21139

PATIENT
  Age: 75 Year
  Sex: Female
  Weight: 54.431 kg

DRUGS (9)
  1. IRESSA [Suspect]
     Indication: RENAL CELL CARCINOMA STAGE UNSPECIFIED
     Dosage: 250 MG PO
     Route: 048
     Dates: start: 20040801, end: 20040901
  2. TOPROL-XL [Concomitant]
  3. NORVASC [Concomitant]
  4. SODIUM BICARBONATE [Concomitant]
  5. FOLIC ACID [Concomitant]
  6. LASIX [Concomitant]
  7. CALCITRIOL [Concomitant]
  8. KEFLEX [Concomitant]
  9. AMOXICILLIN [Concomitant]

REACTIONS (1)
  - LIVER FUNCTION TEST ABNORMAL [None]
